FAERS Safety Report 24238387 (Version 1)
Quarter: 2024Q3

REPORT INFORMATION
  Report Type: Spontaneous
  Country: IN (occurrence: IN)
  Receive Date: 20240822
  Receipt Date: 20240822
  Transmission Date: 20241017
  Serious: Yes (Hospitalization, Other)
  Sender: PFIZER
  Company Number: IN-PFIZER INC-PV202400108482

PATIENT
  Age: 40 Year
  Sex: Male

DRUGS (1)
  1. CRIZOTINIB [Suspect]
     Active Substance: CRIZOTINIB
     Dosage: 250 MG, 2X/DAY
     Route: 048

REACTIONS (12)
  - Loss of consciousness [Unknown]
  - Jaundice [Unknown]
  - Cyanosis [Unknown]
  - Oedema [Unknown]
  - Altered state of consciousness [Unknown]
  - Lymphadenopathy [Unknown]
  - Central nervous system lesion [Unknown]
  - PO2 decreased [Unknown]
  - Heart rate increased [Unknown]
  - Body temperature decreased [Unknown]
  - Blood pressure increased [Unknown]
  - Respiratory rate increased [Unknown]
